FAERS Safety Report 9512907 (Version 1)
Quarter: 2013Q3

REPORT INFORMATION
  Report Type: Spontaneous
  Country: US (occurrence: US)
  Receive Date: 20130910
  Receipt Date: 20130910
  Transmission Date: 20140515
  Serious: No
  Sender: FDA-Public Use
  Company Number: US-ASTELLAS-2013US008649

PATIENT
  Age: 76 Year
  Sex: Male

DRUGS (5)
  1. XTANDI [Suspect]
     Indication: PROSTATE CANCER
     Dosage: 160 MG, UID/QD
     Route: 048
     Dates: start: 20130610
  2. XTANDI [Suspect]
     Dosage: 80 MG, BID, 2 CAPSULES IN THE MORNING , 2 CAPSULES IN THE EVENING
     Route: 048
     Dates: start: 201308
  3. AMLODIPIN                          /00972401/ [Concomitant]
     Indication: PRODUCT USED FOR UNKNOWN INDICATION
     Dosage: UNK
     Route: 065
  4. PREDNISONE [Concomitant]
     Indication: PRODUCT USED FOR UNKNOWN INDICATION
     Dosage: UNK
     Route: 065
  5. ASA [Concomitant]
     Indication: PRODUCT USED FOR UNKNOWN INDICATION
     Dosage: UNK
     Route: 065

REACTIONS (2)
  - Gastric disorder [Unknown]
  - Fatigue [Unknown]
